FAERS Safety Report 4389397-9 (Version None)
Quarter: 2004Q2

REPORT INFORMATION
  Report Type: 
  Country: None (occurrence: None)
  Receive Date: 20040624
  Receipt Date: 20040616
  Transmission Date: 20050107
  Serious: Yes (Death, Other)
  Sender: FDA-Public Use
  Company Number: KII-2001-0002888

PATIENT
  Age: 40 Year
  Sex: Female

DRUGS (1)
  1. OXYCONTIN [Suspect]
     Indication: PAIN
     Dosage: INTRAVENOUS
     Route: 042

REACTIONS (5)
  - CARDIAC ARREST [None]
  - DRUG ABUSER [None]
  - INTENTIONAL MISUSE [None]
  - MEDICATION ERROR [None]
  - OVERDOSE [None]
